FAERS Safety Report 12436253 (Version 3)
Quarter: 2016Q3

REPORT INFORMATION
  Report Type: Spontaneous
  Country: US (occurrence: US)
  Receive Date: 20160605
  Receipt Date: 20160923
  Transmission Date: 20161109
  Serious: Yes (Other)
  Sender: FDA-Public Use
  Company Number: US-JNJFOC-20160600066

PATIENT
  Age: 73 Year
  Sex: Male
  Weight: 134.69 kg

DRUGS (5)
  1. COUMADIN [Concomitant]
     Active Substance: WARFARIN SODIUM
     Route: 065
  2. XARELTO [Suspect]
     Active Substance: RIVAROXABAN
     Indication: PRODUCT USED FOR UNKNOWN INDICATION
     Route: 048
  3. ADEMPAS [Suspect]
     Active Substance: RIOCIGUAT
     Indication: PULMONARY ARTERIAL HYPERTENSION
     Route: 048
  4. ADEMPAS [Suspect]
     Active Substance: RIOCIGUAT
     Indication: PULMONARY ARTERIAL HYPERTENSION
     Route: 048
     Dates: start: 20151026
  5. ADEMPAS [Suspect]
     Active Substance: RIOCIGUAT
     Indication: PULMONARY ARTERIAL HYPERTENSION
     Route: 048

REACTIONS (16)
  - Contusion [Unknown]
  - Peripheral swelling [Unknown]
  - Flushing [Unknown]
  - Multiple allergies [Unknown]
  - Cough [Unknown]
  - Blood pressure decreased [Unknown]
  - Hypertension [Unknown]
  - Abnormal loss of weight [Unknown]
  - Respiratory tract congestion [Unknown]
  - Sinusitis [Unknown]
  - Dyspnoea exertional [Unknown]
  - Feeling abnormal [Unknown]
  - Weight increased [Unknown]
  - Hyperphagia [Unknown]
  - Productive cough [Unknown]
  - Throat irritation [Unknown]

NARRATIVE: CASE EVENT DATE: 201604
